FAERS Safety Report 19390144 (Version 1)
Quarter: 2021Q2

REPORT INFORMATION
  Report Type: Report from Study
  Country: US (occurrence: US)
  Receive Date: 20210608
  Receipt Date: 20210608
  Transmission Date: 20210717
  Serious: Yes (Other)
  Sender: FDA-Public Use
  Company Number: US-BAYER-2021-154061

PATIENT
  Sex: Male
  Weight: 89.8 kg

DRUGS (1)
  1. ADEMPAS [Suspect]
     Active Substance: RIOCIGUAT
     Indication: PULMONARY ARTERIAL HYPERTENSION
     Dosage: 0.5 MG, TID
     Route: 048
     Dates: start: 20210525

REACTIONS (4)
  - Loss of consciousness [None]
  - Hypotension [Not Recovered/Not Resolved]
  - Decubitus ulcer [None]
  - Nausea [None]
